FAERS Safety Report 9908055 (Version 1)
Quarter: 2014Q1

REPORT INFORMATION
  Report Type: Spontaneous
  Country: US (occurrence: None)
  Receive Date: 20140211
  Receipt Date: 20140211
  Transmission Date: 20141002
  Serious: Yes (Other)
  Sender: FDA-Public Use
  Company Number: CC14-0013

PATIENT
  Sex: Female

DRUGS (1)
  1. CICLOPIROX [Suspect]

REACTIONS (2)
  - Onychoclasis [None]
  - Nail injury [None]
